FAERS Safety Report 7428745-X (Version None)
Quarter: 2011Q2

REPORT INFORMATION
  Report Type: 
  Country: None (occurrence: None)
  Receive Date: 20110421
  Receipt Date: 20110419
  Transmission Date: 20111010
  Serious: Yes (Other)
  Sender: FDA-Public Use
  Company Number: US-PFIZER INC-2011086541

PATIENT
  Age: 33 Year
  Sex: Female
  Weight: 61.7 kg

DRUGS (1)
  1. CHANTIX [Suspect]
     Indication: SMOKING CESSATION THERAPY
     Dosage: UNK
     Route: 048
     Dates: start: 20110101, end: 20110401

REACTIONS (4)
  - DISTURBANCE IN ATTENTION [None]
  - FEELING ABNORMAL [None]
  - PSYCHIATRIC SYMPTOM [None]
  - PANIC ATTACK [None]
